FAERS Safety Report 6301983-5 (Version None)
Quarter: 2009Q3

REPORT INFORMATION
  Report Type: 
  Country: None (occurrence: None)
  Receive Date: 20090807
  Receipt Date: 20090729
  Transmission Date: 20100115
  Serious: Yes (Hospitalization)
  Sender: FDA-Public Use
  Company Number: FR-B.I. PHARMACEUTICALS,INC./RIDGEFIELD-2009-FF-00535FF

PATIENT
  Sex: Male

DRUGS (2)
  1. VIRAMUNE [Suspect]
     Indication: HIV TEST POSITIVE
     Dosage: 400 MG
     Route: 048
     Dates: start: 20070925
  2. KIVEXA [Concomitant]
     Indication: HIV TEST POSITIVE
     Route: 048
     Dates: start: 20060707, end: 20090625

REACTIONS (1)
  - MYOCARDIAL INFARCTION [None]
